FAERS Safety Report 6212264-2 (Version None)
Quarter: 2009Q2

REPORT INFORMATION
  Report Type: 
  Country: None (occurrence: None)
  Receive Date: 20090529
  Receipt Date: 20090514
  Transmission Date: 20091009
  Serious: Yes (Hospitalization)
  Sender: FDA-Public Use
  Company Number: ADE#  09-220DPR

PATIENT
  Age: 84 Year
  Sex: Male

DRUGS (4)
  1. DIGOXIN [Suspect]
     Indication: HEART RATE IRREGULAR
     Dosage: ONCE DAILY
  2. PLAVIX [Concomitant]
  3. WARFARIN SODIUM [Concomitant]
  4. HEART MEDICATION [Concomitant]

REACTIONS (3)
  - DYSPNOEA [None]
  - HEART RATE IRREGULAR [None]
  - WHEEZING [None]
